FAERS Safety Report 9803317 (Version 3)
Quarter: 2014Q1

REPORT INFORMATION
  Report Type: Report from Study
  Country: MX (occurrence: MX)
  Receive Date: 20140108
  Receipt Date: 20140131
  Transmission Date: 20141002
  Serious: Yes (Life-Threatening)
  Sender: FDA-Public Use
  Company Number: PHHY2012MX040682

PATIENT
  Age: 49 Year
  Sex: Female

DRUGS (5)
  1. GALVUS MET [Suspect]
     Dosage: 2 DF (500/50MG), DAILY
  2. CO-DIOVAN [Suspect]
     Indication: HYPERTENSION
     Dosage: 1 DF (160/12.5MG) DAILY
     Route: 048
     Dates: start: 201001
  3. CO-DIOVAN [Suspect]
     Dosage: 2DF (160/12.5MG), UNK
     Route: 048
  4. CO-DIOVAN [Suspect]
     Dosage: 3 DF (160/12.5MG), UNK
     Route: 048
  5. CO-DIOVAN [Suspect]
     Dosage: 1 DF (320/12.5 MG), DAILY
     Route: 048
     Dates: start: 2013

REACTIONS (4)
  - Feeling abnormal [Recovering/Resolving]
  - Blood pressure increased [Recovered/Resolved]
  - Blood pressure inadequately controlled [Recovering/Resolving]
  - Drug ineffective [Recovering/Resolving]
